FAERS Safety Report 16445265 (Version 1)
Quarter: 2019Q2

REPORT INFORMATION
  Report Type: Spontaneous
  Country: US (occurrence: US)
  Receive Date: 20190618
  Receipt Date: 20190618
  Transmission Date: 20190711
  Serious: No
  Sender: FDA-Public Use
  Company Number: US-ELI_LILLY_AND_COMPANY-US201906001939

PATIENT
  Sex: Female

DRUGS (4)
  1. VASOLIN [Concomitant]
     Dosage: UNK, UNKNOWN
  2. FIORICET [Concomitant]
     Active Substance: ACETAMINOPHEN\BUTALBITAL\CAFFEINE
     Dosage: UNK, UNKNOWN
  3. TOPAMAX [Concomitant]
     Active Substance: TOPIRAMATE
     Dosage: UNK, UNKNOWN
  4. EMGALITY [Suspect]
     Active Substance: GALCANEZUMAB-GNLM
     Indication: MIGRAINE
     Dosage: 120 MG, UNKNOWN
     Route: 058
     Dates: start: 20190525

REACTIONS (3)
  - Constipation [Unknown]
  - Nausea [Unknown]
  - Abdominal discomfort [Unknown]
